FAERS Safety Report 22980127 (Version 2)
Quarter: 2023Q4

REPORT INFORMATION
  Report Type: Report from Study
  Country: BE (occurrence: BE)
  Receive Date: 20230925
  Receipt Date: 20231221
  Transmission Date: 20240109
  Serious: No
  Sender: FDA-Public Use
  Company Number: BE-JNJFOC-20230948420

PATIENT
  Age: 72 Year
  Sex: Male

DRUGS (1)
  1. IBRUTINIB [Suspect]
     Active Substance: IBRUTINIB
     Indication: Chronic lymphocytic leukaemia
     Route: 048
     Dates: start: 20190325

REACTIONS (2)
  - Avulsion fracture [Recovering/Resolving]
  - Toe operation [Recovered/Resolved]

NARRATIVE: CASE EVENT DATE: 20230123
